FAERS Safety Report 9216197 (Version 1)
Quarter: 2013Q2

REPORT INFORMATION
  Report Type: Spontaneous
  Country: BR (occurrence: None)
  Receive Date: 20130403
  Receipt Date: 20130403
  Transmission Date: 20140414
  Serious: Yes (Hospitalization)
  Sender: FDA-Public Use
  Company Number: DSJ-2013-06097

PATIENT
  Age: 59 Year
  Sex: Female
  Weight: 66.5 kg

DRUGS (3)
  1. BENICAR ANLO [Suspect]
     Indication: HYPERTENSION
     Dosage: 40 / 5  MG  (1  IN  1  D),  PER  ORAL???/??/2008  -  ONGOING?
     Route: 048
     Dates: start: 2008
  2. LEVOTHYROXINE  SODIUM  (LEVOTHYROXINE  SODIUM)  (LEVOTHYROXINE  SODIUM) [Concomitant]
  3. CALCIUM  (CALCIUM)  (CALCIUM) [Concomitant]

REACTIONS (7)
  - Drug ineffective [None]
  - Hypertension [None]
  - Aphonia [None]
  - Dysphonia [None]
  - Fatigue [None]
  - Hypotension [None]
  - Weight decreased [None]
